FAERS Safety Report 17705613 (Version 1)
Quarter: 2020Q2

REPORT INFORMATION
  Report Type: Report from Study
  Country: ES (occurrence: ES)
  Receive Date: 20200424
  Receipt Date: 20200424
  Transmission Date: 20200714
  Serious: Yes (Life-Threatening)
  Sender: FDA-Public Use
  Company Number: ES-PFIZER INC-2020161762

PATIENT
  Age: 60 Year
  Sex: Male
  Weight: 65.3 kg

DRUGS (1)
  1. IRINOTECAN HCL [Suspect]
     Active Substance: IRINOTECAN HYDROCHLORIDE
     Indication: ADENOCARCINOMA GASTRIC
     Dosage: UNK
     Route: 042
     Dates: start: 2019

REACTIONS (3)
  - Hyperbilirubinaemia [Unknown]
  - Pancytopenia [Unknown]
  - Hepatitis [Unknown]

NARRATIVE: CASE EVENT DATE: 20190922
